FAERS Safety Report 9902481 (Version 2)
Quarter: 2014Q2

REPORT INFORMATION
  Report Type: Report from Study
  Country: US (occurrence: US)
  Receive Date: 20140217
  Receipt Date: 20140410
  Transmission Date: 20141212
  Serious: Yes (Death, Life-Threatening, Other)
  Sender: FDA-Public Use
  Company Number: US-ASTRAZENECA-2014SE10843

PATIENT
  Age: 91 Year
  Sex: Female

DRUGS (13)
  1. FASLODEX [Suspect]
     Route: 030
     Dates: start: 20131204, end: 20140106
  2. METOPROLOL SUCCINATE XR [Suspect]
     Dosage: ONE HALF OF 25 MG. DAILY
     Route: 048
  3. ZOCOR [Concomitant]
  4. GABAPENTIN [Concomitant]
  5. ALBUTEROL PROAIR [Concomitant]
     Dosage: 108 MCG. NR
  6. PLAVIX [Concomitant]
  7. COLACE [Concomitant]
     Dosage: 100 MG. PRN
  8. ORAL POTASSIUM [Concomitant]
  9. MUCINEX [Concomitant]
     Dosage: 600 MG. BID
  10. LASIX [Concomitant]
  11. TRAZADONE [Concomitant]
  12. SPIRIVA [Concomitant]
  13. REVATIO [Concomitant]
     Dosage: 20 MG. Q8H

REACTIONS (8)
  - Pre-existing disease [Fatal]
  - Unresponsive to stimuli [Unknown]
  - Breast cancer female [Not Recovered/Not Resolved]
  - Metastases to bone [Not Recovered/Not Resolved]
  - Chronic obstructive pulmonary disease [Not Recovered/Not Resolved]
  - Renal failure chronic [Not Recovered/Not Resolved]
  - Hypertension [Not Recovered/Not Resolved]
  - Off label use [Unknown]
